FAERS Safety Report 11848983 (Version 4)
Quarter: 2019Q4

REPORT INFORMATION
  Report Type: Spontaneous
  Country: JP (occurrence: JP)
  Receive Date: 20151218
  Receipt Date: 20191002
  Transmission Date: 20200122
  Serious: Yes (Hospitalization, Disabling, Other)
  Sender: FDA-Public Use
  Company Number: PHJP2015JP022683

PATIENT
  Age: 60 Year
  Sex: Male
  Weight: 80 kg

DRUGS (1)
  1. NEORAL [Suspect]
     Active Substance: CYCLOSPORINE
     Indication: DERMATITIS ATOPIC
     Dosage: 100 MG, QD
     Route: 048
     Dates: start: 20150603, end: 20151212

REACTIONS (12)
  - Infective spondylitis [Recovering/Resolving]
  - Muscular weakness [Unknown]
  - Cellulitis [Unknown]
  - Tachycardia [Unknown]
  - Hypertension [Unknown]
  - Fall [Unknown]
  - Haemoglobin decreased [Unknown]
  - Ileus [Unknown]
  - Oedema peripheral [Unknown]
  - Thoracic vertebral fracture [Unknown]
  - Extradural abscess [Recovered/Resolved with Sequelae]
  - Erythema [Unknown]

NARRATIVE: CASE EVENT DATE: 20151212
